FAERS Safety Report 4566542-3 (Version None)
Quarter: 2005Q1

REPORT INFORMATION
  Report Type: 
  Country: None (occurrence: None)
  Receive Date: 20050126
  Receipt Date: 20050126
  Transmission Date: 20050727
  Serious: Yes (Hospitalization)
  Sender: FDA-Public Use
  Company Number: None

PATIENT
  Age: 63 Year
  Sex: Male
  Weight: 110.2241 kg

DRUGS (1)
  1. MONOPRIL [Suspect]
     Indication: HYPERTENSION
     Dosage: 20 MG QAM

REACTIONS (1)
  - ANGIONEUROTIC OEDEMA [None]
